FAERS Safety Report 8172936-X (Version None)
Quarter: 2012Q1

REPORT INFORMATION
  Report Type: 
  Country: None (occurrence: None)
  Receive Date: 20120223
  Receipt Date: 20120210
  Transmission Date: 20120608
  Serious: Yes (Death)
  Sender: FDA-Public Use
  Company Number: 1000027030

PATIENT
  Age: 29 Year
  Sex: Female

DRUGS (7)
  1. VIIBRYD [Suspect]
     Indication: DEPRESSION
     Dosage: 40 MG (40 MG, 1 IN 1 D)
     Dates: start: 20111212, end: 20111228
  2. AMBIEN [Suspect]
     Indication: INSOMNIA
     Dosage: 10 MG QHS PRN (10 MG, PRN)
     Dates: start: 20111228
  3. AMBIEN [Suspect]
     Indication: INSOMNIA
     Dosage: 10 MG QHS PRN (10 MG, PRN)
     Dates: start: 20111226, end: 20111228
  4. VIIBRYD [Suspect]
     Indication: DEPRESSION
     Dosage: 10 MG (10 MG, 1 IN 1 D) 20 MG (20 MG, 1 IN 1 D)
     Dates: start: 20111128, end: 20111204
  5. VIIBRYD [Suspect]
     Indication: DEPRESSION
     Dosage: 10 MG (10 MG, 1 IN 1 D) 20 MG (20 MG, 1 IN 1 D)
     Dates: start: 20111205, end: 20111211
  6. WELLBUTRIN [Suspect]
     Dates: start: 20110824, end: 20110907
  7. WELLBUTRIN [Suspect]
     Dates: start: 20111228

REACTIONS (2)
  - COMPLETED SUICIDE [None]
  - INTENTIONAL OVERDOSE [None]
